FAERS Safety Report 10086180 (Version 2)
Quarter: 2014Q2

REPORT INFORMATION
  Report Type: Spontaneous
  Country: CA (occurrence: CA)
  Receive Date: 20140418
  Receipt Date: 20140522
  Transmission Date: 20141212
  Serious: Yes (Hospitalization, Other)
  Sender: FDA-Public Use
  Company Number: CA-AMGEN-CANSP2014026943

PATIENT
  Age: 63 Year
  Sex: Female

DRUGS (5)
  1. PROLIA [Suspect]
     Indication: OSTEOPOROSIS POSTMENOPAUSAL
     Dosage: 60 MG, Q6MO
     Route: 058
     Dates: start: 20110729
  2. IMODIUM [Concomitant]
     Dosage: UNK
  3. PAXIL                              /00500401/ [Concomitant]
     Dosage: UNK
  4. ELAVIL                             /00002202/ [Concomitant]
  5. MAGNESIUM [Concomitant]
     Dosage: UNK

REACTIONS (6)
  - Sepsis [Unknown]
  - Klebsiella infection [Recovered/Resolved]
  - Escherichia infection [Recovered/Resolved]
  - Abscess intestinal [Unknown]
  - Gastrointestinal disorder [Recovered/Resolved]
  - Malaise [Recovered/Resolved]
